FAERS Safety Report 9541964 (Version 2)
Quarter: 2013Q4

REPORT INFORMATION
  Report Type: Report from Study
  Country: US (occurrence: US)
  Receive Date: 20130923
  Receipt Date: 20131007
  Transmission Date: 20140711
  Serious: Yes (Hospitalization, Other)
  Sender: FDA-Public Use
  Company Number: PHEH2013US019832

PATIENT
  Sex: Male

DRUGS (4)
  1. TOBI [Suspect]
     Indication: BRONCHIECTASIS
     Dosage: 300 MG, QD
     Dates: start: 2009
  2. TOBI [Suspect]
     Indication: PSEUDOMONAS INFECTION
  3. PULMOZYME [Concomitant]
     Dosage: UNK UKN, UNK
  4. ADVAIR [Concomitant]
     Dosage: UNK UKN, UNK

REACTIONS (2)
  - Pseudomonas infection [Unknown]
  - Incorrect dose administered [Unknown]
